FAERS Safety Report 5005350-6 (Version None)
Quarter: 2006Q2

REPORT INFORMATION
  Report Type: 
  Country: None (occurrence: None)
  Receive Date: 20060515
  Receipt Date: 20060428
  Transmission Date: 20061013
  Serious: Yes (Hospitalization, Disabling)
  Sender: FDA-Public Use
  Company Number: 378346

PATIENT
  Age: 22 Year
  Sex: Female
  Weight: 79.4 kg

DRUGS (4)
  1. ACCUTANE [Suspect]
     Indication: ACNE
     Dosage: 40 MG DAILY ORAL
     Route: 048
     Dates: start: 19990226, end: 19990629
  2. ORTHO TRI-CYCLEN [Concomitant]
  3. ZOLOFT [Concomitant]
  4. TRIPHASIL-28 [Concomitant]

REACTIONS (53)
  - ABDOMINAL PAIN LOWER [None]
  - ACNE [None]
  - ANAEMIA [None]
  - ARTHROPATHY [None]
  - ARTHROPOD BITE [None]
  - ATELECTASIS [None]
  - BETA HAEMOLYTIC STREPTOCOCCAL INFECTION [None]
  - CAESAREAN SECTION [None]
  - CALCULUS URINARY [None]
  - CHAPPED LIPS [None]
  - CLOSTRIDIUM DIFFICILE COLITIS [None]
  - COLITIS [None]
  - CONDITION AGGRAVATED [None]
  - CROHN'S DISEASE [None]
  - CULTURE STOOL POSITIVE [None]
  - CUSHINGOID [None]
  - CYSTITIS [None]
  - DEHYDRATION [None]
  - DEPRESSION [None]
  - DIZZINESS [None]
  - DRUG EXPOSURE DURING PREGNANCY [None]
  - DRUG INEFFECTIVE [None]
  - DRY EYE [None]
  - DYSPEPSIA [None]
  - EPISTAXIS [None]
  - FUNGAL INFECTION [None]
  - GASTROENTERITIS BACTERIAL [None]
  - GENERALISED ANXIETY DISORDER [None]
  - GLUCOSE TOLERANCE IMPAIRED [None]
  - GRANULOMA [None]
  - HAEMORRHOIDS [None]
  - HEADACHE [None]
  - HEPATIC STEATOSIS [None]
  - HYPERTENSION [None]
  - ILEUS PARALYTIC [None]
  - IMPAIRED WORK ABILITY [None]
  - INCREASED TENDENCY TO BRUISE [None]
  - INFLAMMATORY BOWEL DISEASE [None]
  - LIP DRY [None]
  - MOOD SWINGS [None]
  - NASAL DRYNESS [None]
  - NEPHROLITHIASIS [None]
  - OVARIAN CYST [None]
  - PNEUMONIA [None]
  - PREGNANCY [None]
  - SINUS CONGESTION [None]
  - SKIN STRIAE [None]
  - SYNOVITIS [None]
  - URETERAL DISORDER [None]
  - URTICARIA [None]
  - VISUAL FIELD DEFECT [None]
  - WEIGHT INCREASED [None]
  - YERSINIA INFECTION [None]
